FAERS Safety Report 9696349 (Version 1)
Quarter: 2013Q4

REPORT INFORMATION
  Report Type: Spontaneous
  Country: US (occurrence: US)
  Receive Date: 20131119
  Receipt Date: 20131119
  Transmission Date: 20140711
  Serious: Yes (Other)
  Sender: FDA-Public Use
  Company Number: US-TEVA-393955USA

PATIENT
  Age: 48 Year
  Sex: Male
  Weight: 80.81 kg

DRUGS (4)
  1. OXALIPLATIN [Suspect]
     Indication: COLON CANCER
     Dosage: 130 MG
     Route: 042
     Dates: start: 20120905, end: 20130320
  2. LEUCOVORIN [Concomitant]
     Indication: COLON CANCER
     Route: 042
     Dates: start: 20120905
  3. EMEND [Concomitant]
     Indication: VOMITING
     Route: 042
     Dates: start: 20120905
  4. DEXAMETHASONE [Concomitant]
     Indication: PREMEDICATION
     Route: 042
     Dates: start: 20120905

REACTIONS (4)
  - Dyspnoea [Recovered/Resolved]
  - Flushing [Recovered/Resolved]
  - Tachycardia [Recovered/Resolved]
  - Paraesthesia [Recovered/Resolved]
